FAERS Safety Report 16730799 (Version 1)
Quarter: 2019Q4

REPORT INFORMATION
  Report Type: Spontaneous
  Country: US (occurrence: US)
  Receive Date: 20190822
  Receipt Date: 20190822
  Transmission Date: 20200122
  Serious: Yes (Hospitalization)
  Sender: FDA-Public Use
  Company Number: None

PATIENT
  Age: 51 Year
  Sex: Female

DRUGS (13)
  1. ENBREL [Suspect]
     Active Substance: ETANERCEPT
     Indication: RHEUMATOID ARTHRITIS
     Dosage: ?          OTHER FREQUENCY:ONCE A WEEK;?
     Route: 058
     Dates: start: 20170330
  2. IBUPROFEN. [Concomitant]
     Active Substance: IBUPROFEN
     Dates: start: 20170407
  3. HYDROXYZINE [Concomitant]
     Active Substance: HYDROXYZINE HYDROCHLORIDE
     Dates: start: 20170407
  4. MIGRAINE [Concomitant]
     Dates: start: 20170407
  5. SEREVENT DISKUS [Concomitant]
     Active Substance: SALMETEROL XINAFOATE
     Dates: start: 20180117
  6. TYLENOL [Concomitant]
     Active Substance: ACETAMINOPHEN
     Dates: start: 20170407
  7. SYNTHROID [Concomitant]
     Active Substance: LEVOTHYROXINE SODIUM
     Dates: start: 20170407
  8. BAYER ASA [Concomitant]
     Dates: start: 20180407
  9. AMITRIPTYLIN [Concomitant]
     Active Substance: AMITRIPTYLINE
     Dates: start: 20170407
  10. OMEPRAZOLE. [Concomitant]
     Active Substance: OMEPRAZOLE
     Dates: start: 20180117
  11. CALCIUM+D3 [Concomitant]
     Dates: start: 20170407
  12. ALBUTEROL. [Concomitant]
     Active Substance: ALBUTEROL
     Dates: start: 20180117
  13. HYDROCHLOROTHIAZIDE. [Concomitant]
     Active Substance: HYDROCHLOROTHIAZIDE
     Dates: start: 20170407

REACTIONS (2)
  - Therapy cessation [None]
  - Surgery [None]
